FAERS Safety Report 9693035 (Version 1)
Quarter: 2013Q4

REPORT INFORMATION
  Report Type: Spontaneous
  Country: FR (occurrence: FR)
  Receive Date: 20131118
  Receipt Date: 20131118
  Transmission Date: 20140711
  Serious: Yes (Death)
  Sender: FDA-Public Use
  Company Number: FR-SA-2013SA118658

PATIENT
  Age: 35 Year
  Sex: Male

DRUGS (7)
  1. EVOLTRA [Suspect]
     Indication: ACUTE LYMPHOCYTIC LEUKAEMIA
     Dosage: 1 MG/ML
     Route: 042
     Dates: start: 20111110, end: 20111114
  2. UROMITEXAN [Suspect]
     Indication: ACUTE LYMPHOCYTIC LEUKAEMIA
     Dosage: 1G/10ML
     Route: 042
     Dates: start: 20111117
  3. ARACYTINE [Suspect]
     Indication: ACUTE LYMPHOCYTIC LEUKAEMIA
     Route: 042
     Dates: start: 20111110, end: 20111114
  4. SPRYCEL [Suspect]
     Indication: ACUTE LYMPHOCYTIC LEUKAEMIA
     Dosage: 1 DOSE UNIT/D
     Route: 048
     Dates: start: 20110418, end: 20111109
  5. EMEND [Suspect]
     Indication: ACUTE LYMPHOCYTIC LEUKAEMIA
     Route: 048
     Dates: start: 20111110, end: 20111119
  6. ZOPHREN [Suspect]
     Indication: ACUTE LYMPHOCYTIC LEUKAEMIA
     Dosage: 1 DU
     Route: 048
     Dates: start: 20111110, end: 20111119
  7. ENDOXAN [Suspect]
     Indication: ACUTE LYMPHOCYTIC LEUKAEMIA
     Route: 042
     Dates: start: 20111117

REACTIONS (5)
  - Generalised oedema [Fatal]
  - Anuria [Fatal]
  - Erythema [Fatal]
  - Skin exfoliation [Fatal]
  - Diarrhoea [Fatal]
